FAERS Safety Report 9337052 (Version 2)
Quarter: 2013Q2

REPORT INFORMATION
  Report Type: Spontaneous
  Country: JP (occurrence: JP)
  Receive Date: 20130607
  Receipt Date: 20130618
  Transmission Date: 20140414
  Serious: Yes (Other)
  Sender: FDA-Public Use
  Company Number: JP-PFIZER INC-2013171809

PATIENT
  Age: 55 Year
  Sex: Male

DRUGS (5)
  1. LYRICA [Suspect]
     Indication: SCIATICA
     Dosage: 75 MG, 2X/DAY
     Route: 048
     Dates: start: 20121229, end: 2013
  2. MYONAL [Concomitant]
     Dosage: 50 MG DAILY
     Route: 048
  3. MUCOSTA [Concomitant]
     Dosage: 100 MG, 3X/DAY
     Route: 048
  4. LOXONIN [Concomitant]
     Dosage: 60 MG, 3X/DAY
     Route: 048
  5. OPALMON [Concomitant]
     Dosage: 3 DF, DAILY
     Route: 048
     Dates: start: 20130105

REACTIONS (2)
  - Road traffic accident [Unknown]
  - Somnolence [Recovered/Resolved]
